FAERS Safety Report 9486366 (Version 1)
Quarter: 2013Q3

REPORT INFORMATION
  Report Type: Spontaneous
  Country: CA (occurrence: CA)
  Receive Date: 20130829
  Receipt Date: 20130829
  Transmission Date: 20140515
  Serious: Yes (Other)
  Sender: FDA-Public Use
  Company Number: CA-ASTELLAS-2013US009051

PATIENT
  Age: 73 Year
  Sex: Male

DRUGS (1)
  1. XTANDI [Suspect]
     Indication: NEOPLASM MALIGNANT
     Dosage: 160 MG, UNKNOWN/D
     Route: 048

REACTIONS (7)
  - Transient ischaemic attack [Unknown]
  - Balance disorder [Unknown]
  - Fall [Unknown]
  - Feeling abnormal [Unknown]
  - Urinary incontinence [Unknown]
  - Diarrhoea [Unknown]
  - Pollakiuria [Unknown]
